FAERS Safety Report 7228564-3 (Version None)
Quarter: 2011Q1

REPORT INFORMATION
  Report Type: 
  Country: None (occurrence: None)
  Receive Date: 20110117
  Receipt Date: 20110107
  Transmission Date: 20110831
  Serious: Yes (Hospitalization)
  Sender: FDA-Public Use
  Company Number: US-BIOGENIDEC-2011BI001040

PATIENT
  Age: 49 Year
  Sex: Female
  Weight: 104 kg

DRUGS (1)
  1. AVONEX [Suspect]
     Indication: MULTIPLE SCLEROSIS
     Route: 030

REACTIONS (12)
  - STAPHYLOCOCCAL INFECTION [None]
  - HIP FRACTURE [None]
  - GENERAL SYMPTOM [None]
  - OVERDOSE [None]
  - MULTIPLE SCLEROSIS [None]
  - BONE DISORDER [None]
  - ARTHROPATHY [None]
  - DYSPHAGIA [None]
  - MULTIPLE SCLEROSIS RELAPSE [None]
  - SCOLIOSIS [None]
  - NERVE COMPRESSION [None]
  - GASTROINTESTINAL HAEMORRHAGE [None]
